FAERS Safety Report 5179769-7 (Version None)
Quarter: 2006Q4

REPORT INFORMATION
  Report Type: 
  Country: None (occurrence: None)
  Receive Date: 20061212
  Receipt Date: 20061129
  Transmission Date: 20070319
  Serious: Yes (Other)
  Sender: FDA-Public Use
  Company Number: 2006148321

PATIENT
  Age: 39 Year
  Sex: Female

DRUGS (2)
  1. DEPOCON (MEDROXYPROGESTERONE ACETATE) [Suspect]
     Indication: CONTRACEPTION
     Dosage: SEE IMAGE
     Route: 030
     Dates: start: 20060601, end: 20060601
  2. DEPOCON (MEDROXYPROGESTERONE ACETATE) [Suspect]
     Indication: CONTRACEPTION
     Dosage: SEE IMAGE
     Route: 030
     Dates: start: 20060901, end: 20060901

REACTIONS (2)
  - ARTHRALGIA [None]
  - ARTHRITIS [None]
